FAERS Safety Report 24606219 (Version 3)
Quarter: 2025Q3

REPORT INFORMATION
  Report Type: Spontaneous
  Country: US (occurrence: US)
  Receive Date: 20241112
  Receipt Date: 20250802
  Transmission Date: 20251021
  Serious: Yes (Other)
  Sender: ALEXION PHARMACEUTICALS
  Company Number: US-ASTRAZENECA-202207USA000008US

PATIENT
  Sex: Female

DRUGS (1)
  1. ULTOMIRIS [Suspect]
     Active Substance: RAVULIZUMAB-CWVZ
     Indication: Atypical haemolytic uraemic syndrome
     Route: 065

REACTIONS (5)
  - Breakthrough haemolysis [Not Recovered/Not Resolved]
  - Anaemia [Unknown]
  - Haptoglobin abnormal [Unknown]
  - Blood lactate dehydrogenase abnormal [Unknown]
  - Exposure during pregnancy [Unknown]
